FAERS Safety Report 5583022-7 (Version None)
Quarter: 2008Q1

REPORT INFORMATION
  Report Type: 
  Country: None (occurrence: None)
  Receive Date: 20080107
  Receipt Date: 20080102
  Transmission Date: 20080703
  Serious: Yes (Congenital Anomaly)
  Sender: FDA-Public Use
  Company Number: A0680200A

PATIENT
  Sex: Female

DRUGS (11)
  1. PAXIL [Suspect]
     Indication: POST-TRAUMATIC STRESS DISORDER
     Dates: start: 19990101, end: 20070101
  2. PAXIL CR [Suspect]
     Indication: POST-TRAUMATIC STRESS DISORDER
     Dates: start: 19990101, end: 20070101
  3. PRENATAL VITAMINS [Concomitant]
  4. AUGMENTIN '125' [Concomitant]
     Dates: start: 20030201
  5. PYRIDIUM [Concomitant]
     Dates: start: 20030201
  6. EFFEXOR [Concomitant]
  7. FIORICET [Concomitant]
  8. ALBUTEROL [Concomitant]
  9. AZMACORT [Concomitant]
  10. ZITHROMAX [Concomitant]
  11. PRENATAL VITAMINS [Concomitant]

REACTIONS (14)
  - ABDOMINAL PAIN [None]
  - BACK PAIN [None]
  - CARDIAC DISORDER [None]
  - CARDIOMEGALY [None]
  - CEREBRAL PALSY [None]
  - DRUG EXPOSURE DURING PREGNANCY [None]
  - FOOT DEFORMITY [None]
  - GAIT DISTURBANCE [None]
  - HYPERREFLEXIA [None]
  - PERONEAL NERVE PALSY [None]
  - PERSISTENT FOETAL CIRCULATION [None]
  - TALIPES [None]
  - TENDINOUS CONTRACTURE [None]
  - VENTRICULAR SEPTAL DEFECT [None]
